FAERS Safety Report 18618339 (Version 2)
Quarter: 2020Q4

REPORT INFORMATION
  Report Type: Spontaneous
  Country: IE (occurrence: IE)
  Receive Date: 20201215
  Receipt Date: 20201224
  Transmission Date: 20210114
  Serious: Yes (Other)
  Sender: FDA-Public Use
  Company Number: IE-SA-2019SA038853

PATIENT

DRUGS (18)
  1. LIDOCAINE. [Suspect]
     Active Substance: LIDOCAINE
     Dosage: 2 %, INJECTION
     Route: 064
  2. RANITIDINE. [Suspect]
     Active Substance: RANITIDINE
     Dosage: MATERNAL DOSE: 150 MG
     Route: 064
  3. ROCURONIUM BROMIDE. [Suspect]
     Active Substance: ROCURONIUM BROMIDE
     Dosage: MATERNAL DOSE: 1 MG/KG
     Route: 064
  4. OXYGEN. [Suspect]
     Active Substance: OXYGEN
     Dosage: MATERNAL DOSE: 50 L/MIN
     Route: 064
  5. PROPOFOL. [Suspect]
     Active Substance: PROPOFOL
     Dosage: MATERNAL DOSE: 4-6 UG/ML
     Route: 064
  6. EPINEPHRINE. [Suspect]
     Active Substance: EPINEPHRINE
     Dosage: MATERNAL DOSE: 15 ML
     Route: 064
  7. DEXMEDETOMIDINE. [Suspect]
     Active Substance: DEXMEDETOMIDINE
     Dosage: MATERNAL DOSE: 0.8-1.0 UG/KG/H
     Route: 064
  8. ALPRAZOLAM. [Suspect]
     Active Substance: ALPRAZOLAM
     Dosage: 250 UG TWICE DAILY
     Route: 064
  9. DEXMEDETOMIDINE. [Suspect]
     Active Substance: DEXMEDETOMIDINE
     Dosage: MATERNAL DOSE: 0.8-1.0 UG/KG/H
     Route: 064
  10. OMEPRAZOLE. [Suspect]
     Active Substance: OMEPRAZOLE
     Dosage: MATERNAL DOSE: 20 MG DAILY
     Route: 064
  11. DEXMEDETOMIDINE. [Suspect]
     Active Substance: DEXMEDETOMIDINE
     Dosage: UNK
     Route: 064
  12. PROPOFOL. [Suspect]
     Active Substance: PROPOFOL
     Dosage: MATERNAL DOSE: 180 MG
     Route: 064
  13. OXYGEN. [Suspect]
     Active Substance: OXYGEN
     Dosage: MATERNAL DOSE: 15 L/MIN
     Route: 064
  14. SODIUM CITRATE. [Suspect]
     Active Substance: SODIUM CITRATE
     Dosage: MATERNAL DOSE: 30 ML
     Route: 064
  15. DICLOFENAC [Suspect]
     Active Substance: DICLOFENAC
     Dosage: UNK
     Route: 064
  16. LEVOBUPIVACAINE [Suspect]
     Active Substance: LEVOBUPIVACAINE
     Dosage: MATERNAL DOSE: 30 ML
     Route: 064
  17. PARACETAMOL [Suspect]
     Active Substance: ACETAMINOPHEN
     Dosage: UNK
     Route: 064
  18. DEXMEDETOMIDINE. [Suspect]
     Active Substance: DEXMEDETOMIDINE
     Dosage: MATERNAL DOSE: 0.8 UG/KG OVER 10 MINUTES
     Route: 064

REACTIONS (3)
  - Foetal exposure during pregnancy [Unknown]
  - Premature baby [Unknown]
  - Low birth weight baby [Unknown]
